FAERS Safety Report 6380173-4 (Version None)
Quarter: 2009Q3

REPORT INFORMATION
  Report Type: 
  Country: None (occurrence: None)
  Receive Date: 20090929
  Receipt Date: 20090916
  Transmission Date: 20100115
  Serious: Yes (Other)
  Sender: FDA-Public Use
  Company Number: GB-RANBAXY-2009RR-28185

PATIENT
  Sex: Male

DRUGS (10)
  1. GABAPENTIN [Suspect]
     Indication: PAIN
     Dosage: 1200 MG, TID
     Route: 048
  2. GABAPENTIN [Concomitant]
     Dosage: 900 MG, TID
     Route: 048
  3. ATENOLOL [Concomitant]
     Indication: HYPERTENSION
     Dosage: 50 MG, UNK
  4. BENDROFLUAZIDE [Concomitant]
     Indication: MUSCLE SPASMS
     Dosage: 2.5 MG, UNK
  5. LANSOPRAZOLE [Concomitant]
     Indication: GASTRIC DISORDER
     Dosage: 30 MG, UNK
  6. MAGNESIUM SULFATE [Concomitant]
     Indication: MAGNESIUM DEFICIENCY
     Dosage: 250 MG, UNK
  7. METHADONE HYDROCHLORIDE [Concomitant]
     Indication: PAIN
     Dosage: 30 MG, UNK
  8. PARACETAMOL [Concomitant]
     Indication: PAIN
     Dosage: 1 G, QID
  9. QUININE SULPHATE [Concomitant]
     Indication: MUSCLE SPASMS
     Dosage: 300 MG, UNK
  10. TESTOSTERONE [Concomitant]
     Indication: HORMONE REPLACEMENT THERAPY
     Dosage: 50 MG, UNK

REACTIONS (2)
  - DRUG INEFFECTIVE [None]
  - SEDATION [None]
